FAERS Safety Report 5545871-0 (Version None)
Quarter: 2007Q4

REPORT INFORMATION
  Report Type: 
  Country: None (occurrence: None)
  Receive Date: 20071211
  Receipt Date: 20070817
  Transmission Date: 20080405
  Serious: No
  Sender: FDA-Public Use
  Company Number: US-ASTRAZENECA-2007UW19843

PATIENT
  Age: 83 Year
  Sex: Female
  Weight: 72.6 kg

DRUGS (9)
  1. SYMBICORT [Suspect]
     Indication: EMPHYSEMA
     Dosage: 1 PUFF BID
     Route: 055
     Dates: start: 20070701
  2. SYMBICORT [Suspect]
     Indication: ASTHMA
     Dosage: 1 PUFF BID
     Route: 055
     Dates: start: 20070701
  3. WELCHOL [Concomitant]
  4. ZETIA [Concomitant]
  5. SYNTHROID [Concomitant]
  6. LOTREL [Concomitant]
  7. FISH OIL [Concomitant]
  8. VITAMIN CAP [Concomitant]
  9. CALCIUM [Concomitant]

REACTIONS (1)
  - DEVICE INTERACTION [None]
